FAERS Safety Report 9519340 (Version 1)
Quarter: 2013Q1

REPORT INFORMATION
  Report Type: Spontaneous
  Country: US (occurrence: None)
  Receive Date: 20130305
  Receipt Date: 20130305
  Transmission Date: 20140127
  Serious: Yes (Other)
  Sender: FDA-Public Use
  Company Number: 163-21880-12060792

PATIENT
  Age: 54 Year
  Sex: Female
  Weight: 90.72 kg

DRUGS (6)
  1. REVLIMID [Suspect]
     Indication: PLASMA CELL MYELOMA
     Dosage: 25 MG, 21 IN 21 D, PO
     Route: 048
     Dates: start: 201112
  2. DEXAMETHASONE (DEXAMETHASONE) (UNKNOWN) [Concomitant]
  3. METFORMIN (METFORMIN) (UNKNOWN) [Concomitant]
  4. BABY ASPIRIN (ACETYLSALICYLIC ACID) (UNKNOWN)? [Concomitant]
  5. LOVENOX (HEPARIN-FRACTION, SODIUM SALT) (UNKNOWN) [Concomitant]
  6. NORVASC (AMLODIPINE BESILATE) (UNKNOWN) [Concomitant]

REACTIONS (5)
  - Hypersensitivity [None]
  - Thrombosis [None]
  - Joint swelling [None]
  - Gait disturbance [None]
  - Arthralgia [None]
